FAERS Safety Report 19730036 (Version 1)
Quarter: 2021Q3

REPORT INFORMATION
  Report Type: Spontaneous
  Country: US (occurrence: US)
  Receive Date: 20210820
  Receipt Date: 20210820
  Transmission Date: 20211014
  Serious: No
  Sender: FDA-Public Use
  Company Number: US-SA-2021SA274637

PATIENT

DRUGS (1)
  1. LOVENOX [Suspect]
     Active Substance: ENOXAPARIN SODIUM
     Dosage: 130 MG

REACTIONS (2)
  - Device delivery system issue [Unknown]
  - Incorrect dose administered [Unknown]
